FAERS Safety Report 13603247 (Version 1)
Quarter: 2017Q2

REPORT INFORMATION
  Report Type: Spontaneous
  Country: ES (occurrence: ES)
  Receive Date: 20170601
  Receipt Date: 20170601
  Transmission Date: 20170830
  Serious: Yes (Other)
  Sender: FDA-Public Use
  Company Number: ES-PFIZER INC-2017234789

PATIENT
  Age: 3 Decade
  Sex: Female

DRUGS (2)
  1. CHAMPIX [Suspect]
     Active Substance: VARENICLINE TARTRATE
     Dosage: 0.5 MG, 1X/DAY
     Route: 048
  2. FENNEL /01234601/ [Concomitant]
     Dosage: UNK

REACTIONS (5)
  - Cellulitis [Unknown]
  - Stress [Unknown]
  - Swelling [Unknown]
  - Intentional product use issue [Unknown]
  - Poor peripheral circulation [Unknown]
